FAERS Safety Report 4308963-X (Version None)
Quarter: 2004Q1

REPORT INFORMATION
  Report Type: 
  Country: None (occurrence: None)
  Receive Date: 20040227
  Receipt Date: 20040220
  Transmission Date: 20041129
  Serious: Yes (Hospitalization)
  Sender: FDA-Public Use
  Company Number: 200410483GDS

PATIENT
  Age: 76 Year
  Sex: Male

DRUGS (1)
  1. ASPIRIN [Suspect]
     Indication: ANTIPLATELET THERAPY
     Dosage: 100 MG, QD, ORAL
     Route: 048
     Dates: end: 20040109

REACTIONS (8)
  - BALANCE DISORDER [None]
  - CEREBRAL HAEMATOMA [None]
  - DIFFICULTY IN WALKING [None]
  - EPILEPSY [None]
  - FALL [None]
  - HAEMORRHAGE INTRACRANIAL [None]
  - HEAD INJURY [None]
  - HEMIPARESIS [None]
